FAERS Safety Report 10013377 (Version 1)
Quarter: 2014Q1

REPORT INFORMATION
  Report Type: Spontaneous
  Country: GB (occurrence: GB)
  Receive Date: 20140314
  Receipt Date: 20140314
  Transmission Date: 20141002
  Serious: Yes (Hospitalization)
  Sender: FDA-Public Use
  Company Number: GB-CELGENEUS-167-POMAL-14030161

PATIENT
  Sex: Male

DRUGS (3)
  1. IMNOVID [Suspect]
     Indication: PLASMA CELL MYELOMA
     Route: 048
  2. IMNOVID [Suspect]
     Route: 048
     Dates: start: 20140225
  3. DEXAMETHASONE [Concomitant]
     Indication: PLASMA CELL MYELOMA
     Route: 065

REACTIONS (3)
  - Circulatory collapse [Recovered/Resolved]
  - Pallor [Recovered/Resolved]
  - General physical health deterioration [Recovered/Resolved]
